FAERS Safety Report 14605994 (Version 3)
Quarter: 2018Q3

REPORT INFORMATION
  Report Type: Spontaneous
  Country: FR (occurrence: FR)
  Receive Date: 20180307
  Receipt Date: 20180824
  Transmission Date: 20181010
  Serious: Yes (Death, Hospitalization, Other)
  Sender: FDA-Public Use
  Company Number: FR-ROCHE-2080117

PATIENT
  Age: 63 Year
  Sex: Male

DRUGS (4)
  1. TACROLIMUS. [Suspect]
     Active Substance: TACROLIMUS
     Indication: PROPHYLAXIS AGAINST TRANSPLANT REJECTION
     Dosage: SERUM TROUGH LEVELS BETEWEEN 7 AND 8 MCG/L
     Route: 065
     Dates: start: 2013
  2. TACROLIMUS. [Suspect]
     Active Substance: TACROLIMUS
     Dosage: SERUM TROUGH LEVELS BETEWEEN 5 AND 6 MCG/L
     Route: 065
  3. MYCOPHENOLATE MOFETIL. [Suspect]
     Active Substance: MYCOPHENOLATE MOFETIL
     Indication: PROPHYLAXIS AGAINST TRANSPLANT REJECTION
     Route: 065
     Dates: start: 2013
  4. MYCOPHENOLATE MOFETIL. [Suspect]
     Active Substance: MYCOPHENOLATE MOFETIL
     Route: 065

REACTIONS (5)
  - Fungal infection [Recovered/Resolved]
  - Intentional product use issue [Fatal]
  - Off label use [Fatal]
  - Pneumonia aspiration [Fatal]
  - Brain abscess [Recovering/Resolving]

NARRATIVE: CASE EVENT DATE: 201512
